FAERS Safety Report 9289946 (Version 1)
Quarter: 2013Q2

REPORT INFORMATION
  Report Type: Spontaneous
  Country: CH (occurrence: CH)
  Receive Date: 20130515
  Receipt Date: 20130515
  Transmission Date: 20140414
  Serious: Yes (Death, Other)
  Sender: FDA-Public Use
  Company Number: CH-JNJFOC-20130503173

PATIENT
  Sex: 0

DRUGS (7)
  1. DOXORUBICIN [Suspect]
     Indication: DIFFUSE LARGE B-CELL LYMPHOMA
     Route: 042
  2. CYCLOPHOSPHAMIDE [Suspect]
     Indication: DIFFUSE LARGE B-CELL LYMPHOMA
     Route: 065
  3. VINDESINE [Suspect]
     Indication: DIFFUSE LARGE B-CELL LYMPHOMA
     Route: 065
  4. BLEOMYCIN [Suspect]
     Indication: DIFFUSE LARGE B-CELL LYMPHOMA
     Route: 065
  5. PREDNISONE [Suspect]
     Indication: DIFFUSE LARGE B-CELL LYMPHOMA
     Route: 065
  6. RITUXIMAB [Suspect]
     Indication: DIFFUSE LARGE B-CELL LYMPHOMA
     Route: 065
  7. GRANULOCYTE STIMULATING FACTOR [Concomitant]
     Route: 065

REACTIONS (19)
  - Disease progression [Fatal]
  - Anaemia [Unknown]
  - Condition aggravated [Unknown]
  - Neutropenia [Unknown]
  - Thrombocytopenia [Unknown]
  - Febrile neutropenia [Unknown]
  - Infection [Unknown]
  - Vomiting [Unknown]
  - Mucosal inflammation [Unknown]
  - Coagulopathy [Unknown]
  - Angiopathy [Unknown]
  - Lung disorder [Unknown]
  - Liver function test abnormal [Unknown]
  - Neurotoxicity [Unknown]
  - Adverse event [Unknown]
  - Blood creatinine increased [Unknown]
  - Skin toxicity [Unknown]
  - Cardiotoxicity [Unknown]
  - Diarrhoea [Unknown]
